FAERS Safety Report 7218685-3 (Version None)
Quarter: 2011Q1

REPORT INFORMATION
  Report Type: 
  Country: None (occurrence: None)
  Receive Date: 20110110
  Receipt Date: 20100928
  Transmission Date: 20110831
  Serious: No
  Sender: FDA-Public Use
  Company Number: US-ABBOTT-10P-163-0675348-00

PATIENT
  Sex: Female
  Weight: 63.56 kg

DRUGS (12)
  1. VICODIN [Suspect]
     Indication: LOWER LIMB FRACTURE
  2. IBUPROFEN [Concomitant]
     Indication: MUSCLE SPASMS
  3. VICODIN [Suspect]
     Indication: MYALGIA
     Dosage: 5/500MG TABLET ONCE DAILY AS REQUIRED
  4. TYLENOL [Concomitant]
     Indication: MUSCLE SPASMS
     Dosage: AS REQUIRED, NOT WITH VICODIN
  5. VICODIN [Suspect]
     Dosage: 0.5 OF A 5/500MG TABLET
  6. VICODIN [Suspect]
     Indication: PAIN
     Dosage: 5/500MG TABLET X 1
  7. IBUPROFEN [Concomitant]
     Indication: DRUG THERAPY
  8. TYLENOL [Concomitant]
     Indication: DRUG THERAPY
  9. RECLAST [Concomitant]
     Indication: PRODUCT USED FOR UNKNOWN INDICATION
  10. IBUPROFEN [Concomitant]
     Indication: MYALGIA
     Dosage: AS REQUIRED, NOT TAKING WITH VICODIN
  11. VICODIN [Suspect]
     Indication: DRUG THERAPY
     Dosage: 5/500MG TABLET X 2
  12. TYLENOL [Concomitant]

REACTIONS (5)
  - ANXIETY [None]
  - FEAR [None]
  - FEELING HOT [None]
  - RESPIRATORY RATE DECREASED [None]
  - DIZZINESS [None]
